FAERS Safety Report 6822426-9 (Version None)
Quarter: 2010Q3

REPORT INFORMATION
  Report Type: 
  Country: None (occurrence: None)
  Receive Date: 20100707
  Receipt Date: 20100707
  Transmission Date: 20110219
  Serious: Yes (Hospitalization, Disabling)
  Sender: FDA-Public Use
  Company Number: None

PATIENT
  Age: 17 Year
  Sex: Female
  Weight: 58.9676 kg

DRUGS (1)
  1. DOXYCYCLINE [Suspect]
     Indication: ACNE
     Dosage: 1 TABLET 2 TIMES PER DAY PO
     Route: 048
     Dates: start: 20100610, end: 20100625

REACTIONS (6)
  - EATING DISORDER [None]
  - EXCORIATION [None]
  - FUNGAL OESOPHAGITIS [None]
  - PAIN [None]
  - THERMAL BURN [None]
  - VOMITING [None]
